FAERS Safety Report 8763566 (Version 1)
Quarter: 2012Q4

REPORT INFORMATION
  Report Type: 
  Country: US (occurrence: US)
  Receive Date: 20120831
  Receipt Date: 20120831
  Transmission Date: 20130627
  Serious: No
  Sender: FDA-Public Use
  Company Number: US-BIOGENIDEC-2012BI033724

PATIENT
  Sex: Male

DRUGS (1)
  1. AVONEX [Suspect]
     Indication: MULTIPLE SCLEROSIS
     Route: 030
     Dates: start: 20090721

REACTIONS (5)
  - Dental caries [Not Recovered/Not Resolved]
  - Gingival swelling [Recovered/Resolved]
  - Tooth fracture [Not Recovered/Not Resolved]
  - Toothache [Not Recovered/Not Resolved]
  - Gingival bleeding [Recovered/Resolved]
